FAERS Safety Report 9236163 (Version 1)
Quarter: 2013Q2

REPORT INFORMATION
  Report Type: Spontaneous
  Country: US (occurrence: None)
  Receive Date: 20130416
  Receipt Date: 20130416
  Transmission Date: 20140414
  Serious: Yes (Other)
  Sender: FDA-Public Use
  Company Number: None

PATIENT
  Age: 62 Year
  Sex: Female
  Weight: 102.97 kg

DRUGS (2)
  1. CYANOCOBALAMIN [Suspect]
     Dosage: 1 ML X 2 WKS FOR 4 DOSES XMTH FOR 6 MTHS
     Dates: start: 20130330
  2. BD/INTEGRA SYRINGE 3ML 25G X 1 [Suspect]
     Dosage: 10 NEEDLES?LOT # 1003602?EXP 6-2013

REACTIONS (7)
  - Injection site warmth [None]
  - Pain [None]
  - Blood pressure increased [None]
  - Movement disorder [None]
  - Drug ineffective [None]
  - Swelling [None]
  - Neuritis [None]
